FAERS Safety Report 8451157-7 (Version None)
Quarter: 2012Q2

REPORT INFORMATION
  Report Type: 
  Country: None (occurrence: None)
  Receive Date: 20120620
  Receipt Date: 20120504
  Transmission Date: 20120825
  Serious: Yes (Hospitalization)
  Sender: FDA-Public Use
  Company Number: US-ROCHE-1078452

PATIENT
  Sex: Male
  Weight: 100.79 kg

DRUGS (4)
  1. XELODA [Suspect]
     Indication: COLORECTAL CANCER METASTATIC
     Route: 048
     Dates: start: 20120417
  2. XELODA [Suspect]
     Route: 048
     Dates: start: 20120417, end: 20120508
  3. WARFARIN SODIUM [Concomitant]
     Indication: ANTICOAGULANT THERAPY
     Dosage: DOSE 4.5 -  5.0 ALTERRNATE DAILY
     Route: 048
     Dates: start: 20100101
  4. AVASTIN [Suspect]
     Indication: COLORECTAL CANCER METASTATIC
     Route: 042
     Dates: start: 20120502, end: 20120502

REACTIONS (4)
  - GASTROINTESTINAL DISORDER [None]
  - DEHYDRATION [None]
  - SKIN EXFOLIATION [None]
  - DYSGEUSIA [None]
